FAERS Safety Report 25299049 (Version 1)
Quarter: 2025Q2

REPORT INFORMATION
  Report Type: Spontaneous
  Country: DE (occurrence: DE)
  Receive Date: 20250512
  Receipt Date: 20250512
  Transmission Date: 20250717
  Serious: Yes (Congenital Anomaly)
  Sender: DR REDDYS
  Company Number: None

PATIENT
  Sex: Male
  Weight: 3.5 kg

DRUGS (4)
  1. VENLAFAXINE [Suspect]
     Active Substance: VENLAFAXINE HYDROCHLORIDE
     Indication: Anxiety disorder
     Route: 064
     Dates: start: 201905, end: 202001
  2. VENLAFAXINE [Suspect]
     Active Substance: VENLAFAXINE HYDROCHLORIDE
     Indication: Depression
  3. Dominal [Concomitant]
     Indication: Sleep disorder
     Route: 064
     Dates: start: 201905, end: 201906
  4. ZOLPIDEM [Concomitant]
     Active Substance: ZOLPIDEM TARTRATE
     Indication: Sleep disorder
     Route: 064
     Dates: start: 201906, end: 201908

REACTIONS (3)
  - Ventricular septal defect [Unknown]
  - Atrial septal defect [Unknown]
  - Foetal exposure during pregnancy [Unknown]
